FAERS Safety Report 15378149 (Version 1)
Quarter: 2018Q3

REPORT INFORMATION
  Report Type: Spontaneous
  Country: US (occurrence: US)
  Receive Date: 20180913
  Receipt Date: 20180913
  Transmission Date: 20181010
  Serious: No
  Sender: FDA-Public Use
  Company Number: US-ALLERGAN-1822330US

PATIENT
  Age: 45 Year
  Sex: Female

DRUGS (4)
  1. LEVOTHYROXIN [Concomitant]
     Active Substance: LEVOTHYROXINE
     Indication: HYPOTHYROIDISM
     Dosage: UNK, PRN
     Route: 048
  2. VANIQA [Suspect]
     Active Substance: EFLORNITHINE HYDROCHLORIDE
     Indication: HAIR GROWTH ABNORMAL
     Dosage: APPLY SMALLER THAN PEA SIZE
     Route: 061
  3. CENTRUM [Concomitant]
     Active Substance: VITAMINS
     Dosage: UNK UNK, PRN
     Route: 048
  4. VITAMIN D [Concomitant]
     Active Substance: CHOLECALCIFEROL
     Dosage: UNK, PRN
     Route: 048

REACTIONS (2)
  - Drug dose omission [Unknown]
  - Hair growth abnormal [Unknown]
